FAERS Safety Report 11624509 (Version 4)
Quarter: 2015Q4

REPORT INFORMATION
  Report Type: Report from Study
  Country: CA (occurrence: CA)
  Receive Date: 20151013
  Receipt Date: 20151127
  Transmission Date: 20160304
  Serious: Yes (Hospitalization)
  Sender: FDA-Public Use
  Company Number: PHHY2015CA123847

PATIENT
  Sex: Female

DRUGS (2)
  1. GILENYA [Suspect]
     Active Substance: FINGOLIMOD HYDROCHLORIDE
     Indication: MULTIPLE SCLEROSIS
     Dosage: UNK
     Route: 048
     Dates: start: 20150915
  2. GILENYA [Suspect]
     Active Substance: FINGOLIMOD HYDROCHLORIDE
     Dosage: UNK UNK, QOD
     Route: 048

REACTIONS (8)
  - Malaise [Unknown]
  - Erythema [Unknown]
  - Facial spasm [Unknown]
  - Headache [Unknown]
  - Stress [Unknown]
  - Emotional disorder [Unknown]
  - Intentional underdose [Unknown]
  - Feeling abnormal [Unknown]
